FAERS Safety Report 16248747 (Version 1)
Quarter: 2019Q2

REPORT INFORMATION
  Report Type: Spontaneous
  Country: US (occurrence: US)
  Receive Date: 20190429
  Receipt Date: 20190429
  Transmission Date: 20190711
  Serious: Yes (Hospitalization)
  Sender: FDA-Public Use
  Company Number: US-009507513-1904USA010268

PATIENT
  Sex: Female
  Weight: 45.35 kg

DRUGS (12)
  1. OLANZAPINE. [Concomitant]
     Active Substance: OLANZAPINE
  2. PROGESTERONE. [Concomitant]
     Active Substance: PROGESTERONE
  3. APREPITANT. [Concomitant]
     Active Substance: APREPITANT
  4. INTRON A [Suspect]
     Active Substance: INTERFERON ALFA-2B
     Indication: HEPATIC CANCER
     Dosage: 6 MU, DAYS 1,3,5,7 EVERY 14 DAYS
     Route: 058
  5. LIDOCAINE (+) PRILOCAINE [Concomitant]
  6. LUPRON DEPOT [Concomitant]
     Active Substance: LEUPROLIDE ACETATE
  7. LEVOFLOXACIN. [Concomitant]
     Active Substance: LEVOFLOXACIN
  8. IBUPROFEN. [Concomitant]
     Active Substance: IBUPROFEN
  9. POLYETHYLENE GLYCOL [Concomitant]
     Active Substance: POLYETHYLENE GLYCOLS
  10. ESTRADIOL. [Concomitant]
     Active Substance: ESTRADIOL
  11. XELODA [Concomitant]
     Active Substance: CAPECITABINE
  12. SERTRALINE HYDROCHLORIDE. [Concomitant]
     Active Substance: SERTRALINE HYDROCHLORIDE

REACTIONS (2)
  - Product use in unapproved indication [Unknown]
  - Adverse event [Unknown]
